FAERS Safety Report 4401122-1 (Version None)
Quarter: 2004Q3

REPORT INFORMATION
  Report Type: 
  Country: None (occurrence: None)
  Receive Date: 20040907
  Receipt Date: 20031107
  Transmission Date: 20050211
  Serious: No
  Sender: FDA-Public Use
  Company Number: US-BRISTOL-MYERS SQUIBB COMPANY-12430856

PATIENT
  Age: 80 Year
  Sex: Male
  Weight: 77 kg

DRUGS (1)
  1. COUMADIN [Suspect]
     Indication: CEREBROVASCULAR ACCIDENT
     Dosage: 7 MG DAILY STARTING IN 1996, LAST 2 YEARS INCREASED BETWEEN 8.5 MG AND 9.5 MG DAILY.
     Route: 048
     Dates: start: 19960101, end: 20031215

REACTIONS (1)
  - WHITE BLOOD CELL COUNT INCREASED [None]
